FAERS Safety Report 9399901 (Version 1)
Quarter: 2013Q3

REPORT INFORMATION
  Report Type: Spontaneous
  Country: CY (occurrence: CY)
  Receive Date: 20130715
  Receipt Date: 20130715
  Transmission Date: 20140515
  Serious: Yes (Other)
  Sender: FDA-Public Use
  Company Number: CY-ROXANE LABORATORIES, INC.-2013-RO-01114RO

PATIENT
  Age: 24 Year
  Sex: Female

DRUGS (2)
  1. ZOLPIDEM [Suspect]
     Indication: INSOMNIA
     Dosage: 10 MG
  2. PAROXETINE [Suspect]
     Indication: PANIC DISORDER
     Dosage: 30 MG
     Route: 048

REACTIONS (2)
  - Illusion [Recovered/Resolved]
  - Panic attack [Recovered/Resolved]
